FAERS Safety Report 5952975-7 (Version None)
Quarter: 2008Q4

REPORT INFORMATION
  Report Type: 
  Country: None (occurrence: None)
  Receive Date: 20081114
  Receipt Date: 20081104
  Transmission Date: 20090506
  Serious: Yes (Death, Other)
  Sender: FDA-Public Use
  Company Number: US-PURDUE-USA_2008_0034619

PATIENT
  Age: 16 Year
  Sex: Male

DRUGS (3)
  1. OXYCODONE HCL [Suspect]
     Indication: DRUG USE FOR UNKNOWN INDICATION
  2. METHADONE HCL [Suspect]
     Indication: DRUG USE FOR UNKNOWN INDICATION
  3. AMFETAMINE                         /00003402/ [Suspect]
     Indication: DRUG USE FOR UNKNOWN INDICATION

REACTIONS (3)
  - ACCIDENTAL OVERDOSE [None]
  - DRUG TOXICITY [None]
  - SUBSTANCE ABUSE [None]
